FAERS Safety Report 18100573 (Version 4)
Quarter: 2022Q3

REPORT INFORMATION
  Report Type: Report from Study
  Country: US (occurrence: US)
  Receive Date: 20200731
  Receipt Date: 20220715
  Transmission Date: 20221026
  Serious: Yes (Death, Hospitalization)
  Sender: FDA-Public Use
  Company Number: NVSC2020US120250

PATIENT
  Sex: Male
  Weight: 109.6 kg

DRUGS (4)
  1. DABRAFENIB [Suspect]
     Active Substance: DABRAFENIB
     Indication: Malignant melanoma
     Dosage: 150 MG, BID
     Route: 048
     Dates: start: 20200218, end: 20201023
  2. TRAMETINIB [Suspect]
     Active Substance: TRAMETINIB
     Indication: Malignant melanoma
     Dosage: 2 MG, QD
     Route: 048
     Dates: start: 20200218, end: 20201023
  3. IPILIMUMAB [Suspect]
     Active Substance: IPILIMUMAB
     Indication: Malignant melanoma
     Dosage: 1175.4 MG
     Route: 042
     Dates: start: 20190621, end: 20190730
  4. NIVOLUMAB [Suspect]
     Active Substance: NIVOLUMAB
     Indication: Malignant melanoma
     Dosage: 2663.4 MG
     Route: 042
     Dates: start: 20190621, end: 20191217

REACTIONS (8)
  - Embolism [Fatal]
  - Pyelonephritis [Recovered/Resolved with Sequelae]
  - Sepsis [Unknown]
  - Central nervous system necrosis [Recovered/Resolved with Sequelae]
  - Acidosis [Unknown]
  - Cardiac arrest [Unknown]
  - Brain oedema [Unknown]
  - Hypotension [Unknown]

NARRATIVE: CASE EVENT DATE: 20200426
